FAERS Safety Report 23996125 (Version 1)
Quarter: 2024Q2

REPORT INFORMATION
  Report Type: Spontaneous
  Country: BG (occurrence: BG)
  Receive Date: 20240620
  Receipt Date: 20240620
  Transmission Date: 20240715
  Serious: Yes (Other)
  Sender: FDA-Public Use
  Company Number: BG-ASTELLAS-2024US011630

PATIENT
  Age: 40 Year
  Sex: Male

DRUGS (6)
  1. LYRICA [Suspect]
     Active Substance: PREGABALIN
     Indication: Product used for unknown indication
     Dosage: 150 MILLIGRAM (2 X 75 MG FROM THREE DAYS)
     Route: 065
  2. LYRICA [Suspect]
     Active Substance: PREGABALIN
     Dosage: UNK
     Route: 065
  3. MIRABEGRON [Suspect]
     Active Substance: MIRABEGRON
     Indication: Urinary incontinence
     Dosage: 50 MILLIGRAM, QD
     Route: 048
     Dates: start: 20240410, end: 20240417
  4. MIRABEGRON [Suspect]
     Active Substance: MIRABEGRON
     Dosage: 50 MG QD, ONCE DAILY (1 TABLET)
     Route: 048
     Dates: start: 20240514
  5. SULPIRIDE [Concomitant]
     Active Substance: SULPIRIDE
     Indication: Product used for unknown indication
     Dosage: 100 MILLIGRAM, (2 X 50 MG)
     Route: 065
  6. RIVOTRIL [Concomitant]
     Active Substance: CLONAZEPAM
     Indication: Product used for unknown indication
     Dosage: 1.5 MILLIGRAM, QD
     Route: 065

REACTIONS (6)
  - Urinary retention [Recovered/Resolved]
  - Erection increased [Unknown]
  - Urine output decreased [Unknown]
  - Libido increased [Unknown]
  - Insomnia [Unknown]
  - Off label use [Unknown]

NARRATIVE: CASE EVENT DATE: 20240401
